FAERS Safety Report 7755655-0 (Version None)
Quarter: 2011Q3

REPORT INFORMATION
  Report Type: 
  Country: None (occurrence: None)
  Receive Date: 20110916
  Receipt Date: 20110908
  Transmission Date: 20111222
  Serious: Yes (Hospitalization)
  Sender: FDA-Public Use
  Company Number: US-B.I. PHARMACEUTICALS,INC./RIDGEFIELD-2011-BP-21760BP

PATIENT
  Sex: Female

DRUGS (2)
  1. ZANTAC 150 [Suspect]
     Indication: SUICIDE ATTEMPT
     Dosage: 3750 MG
     Route: 048
     Dates: start: 20110904, end: 20110904
  2. CITALOPRAM HYDROBROMIDE [Concomitant]
     Indication: DEPRESSION
     Dates: start: 20110907

REACTIONS (3)
  - ABDOMINAL PAIN [None]
  - OVERDOSE [None]
  - NAUSEA [None]
